FAERS Safety Report 13640384 (Version 3)
Quarter: 2017Q3

REPORT INFORMATION
  Report Type: Spontaneous
  Country: SE (occurrence: SE)
  Receive Date: 20170610
  Receipt Date: 20170828
  Transmission Date: 20171127
  Serious: Yes (Death, Hospitalization)
  Sender: FDA-Public Use
  Company Number: SE-ACTELION-A-CH2017-151585

PATIENT
  Age: 72 Year
  Sex: Female

DRUGS (10)
  1. WARAN [Concomitant]
     Active Substance: WARFARIN SODIUM
  2. DIGOXIN. [Concomitant]
     Active Substance: DIGOXIN
     Dosage: 0.13 MG, OD
  3. OPSUMIT [Concomitant]
     Active Substance: MACITENTAN
     Indication: PULMONARY ARTERIAL HYPERTENSION
     Dosage: 10 MG, OD
     Route: 048
     Dates: start: 20140612, end: 20170618
  4. UPTRAVI [Suspect]
     Active Substance: SELEXIPAG
     Indication: PULMONARY ARTERIAL HYPERTENSION
     Dosage: 1200 ?G, BID
     Route: 048
     Dates: start: 20170303, end: 20170508
  5. UPTRAVI [Suspect]
     Active Substance: SELEXIPAG
     Dosage: 200 ?G, BID
     Route: 048
     Dates: start: 20170103
  6. OMEPRAZOL [Concomitant]
     Active Substance: OMEPRAZOLE
     Dosage: 20 MG, OD
  7. VIAGRA [Concomitant]
     Active Substance: SILDENAFIL CITRATE
     Dosage: 75 MG, TID
  8. SILDENAFIL. [Concomitant]
     Active Substance: SILDENAFIL
     Indication: PULMONARY ARTERIAL HYPERTENSION
     Dosage: 100 MG, TID
     Route: 048
     Dates: start: 2008, end: 20170618
  9. UPTRAVI [Suspect]
     Active Substance: SELEXIPAG
     Dosage: 200 ?G, BID
     Route: 048
     Dates: start: 20170522, end: 20170618
  10. DUROFERON [Concomitant]
     Active Substance: FERROUS SULFATE
     Dosage: 100 MG, OD

REACTIONS (10)
  - Right ventricular failure [Fatal]
  - Pulmonary arterial hypertension [Fatal]
  - Left ventricular failure [Recovered/Resolved]
  - Terminal state [Fatal]
  - Cardiac disorder [Recovered/Resolved]
  - Condition aggravated [Fatal]
  - Diarrhoea [Not Recovered/Not Resolved]
  - Headache [Not Recovered/Not Resolved]
  - N-terminal prohormone brain natriuretic peptide increased [Recovered/Resolved]
  - Blood creatinine increased [Recovered/Resolved]

NARRATIVE: CASE EVENT DATE: 2017
